FAERS Safety Report 13909183 (Version 2)
Quarter: 2021Q1

REPORT INFORMATION
  Report Type: Spontaneous
  Country: US (occurrence: US)
  Receive Date: 20170828
  Receipt Date: 20210329
  Transmission Date: 20210419
  Serious: No
  Sender: FDA-Public Use
  Company Number: PHEH2017US027261

PATIENT

DRUGS (1)
  1. ENTRESTO [Suspect]
     Active Substance: SACUBITRIL\VALSARTAN
     Indication: PRODUCT USED FOR UNKNOWN INDICATION
     Dosage: 50 MG, UNKNOWN (24/26)
     Route: 065

REACTIONS (3)
  - Glomerular filtration rate decreased [Unknown]
  - Blood creatine increased [Not Recovered/Not Resolved]
  - Blood pressure abnormal [Unknown]
